FAERS Safety Report 6780885-4 (Version None)
Quarter: 2010Q2

REPORT INFORMATION
  Report Type: 
  Country: None (occurrence: None)
  Receive Date: 20100621
  Receipt Date: 20100614
  Transmission Date: 20101027
  Serious: Yes (Death)
  Sender: FDA-Public Use
  Company Number: ES-BAYER-201019288GPV

PATIENT
  Age: 57 Year
  Sex: Female

DRUGS (6)
  1. BETAFERON [Suspect]
     Indication: RELAPSING-REMITTING MULTIPLE SCLEROSIS
     Route: 058
     Dates: start: 19970101, end: 20100308
  2. ENALAPRIL MALEATE [Suspect]
     Indication: HYPERTENSION
     Dates: start: 20060101
  3. HYDROCHLOROTHIAZIDE [Suspect]
     Indication: HYPERTENSION
     Dates: start: 20060101
  4. IBUPROFENO [Suspect]
     Indication: BONE PAIN
     Dates: start: 20100201
  5. ACETAMINOPHEN [Suspect]
     Indication: BONE PAIN
     Dates: start: 20100201
  6. CODEINE SULFATE [Concomitant]

REACTIONS (1)
  - PANCREATITIS ACUTE [None]
